FAERS Safety Report 5179368-7 (Version None)
Quarter: 2006Q4

REPORT INFORMATION
  Report Type: 
  Country: None (occurrence: None)
  Receive Date: 20061211
  Receipt Date: 20061128
  Transmission Date: 20070319
  Serious: Yes (Hospitalization, Other)
  Sender: FDA-Public Use
  Company Number: 2006US002077

PATIENT
  Age: 62 Year
  Sex: Male
  Weight: 77.1 kg

DRUGS (3)
  1. AMEVIVE [Suspect]
     Indication: PSORIASIS
     Dosage: 15 MG, WEEKLY, INTRAMUSCULAR
     Route: 030
     Dates: start: 20031203, end: 20040511
  2. ASPIRIN [Concomitant]
  3. NIASPAN [Concomitant]

REACTIONS (2)
  - DIARRHOEA [None]
  - MANTLE CELL LYMPHOMA [None]
